FAERS Safety Report 11168220 (Version 1)
Quarter: 2015Q2

REPORT INFORMATION
  Report Type: Spontaneous
  Country: US (occurrence: US)
  Receive Date: 20150605
  Receipt Date: 20150605
  Transmission Date: 20150821
  Serious: No
  Sender: FDA-Public Use
  Company Number: US-009507513-1505USA012527

PATIENT
  Age: 47 Year
  Sex: Male

DRUGS (2)
  1. INTRON A [Suspect]
     Active Substance: INTERFERON ALFA-2B
     Indication: LYMPHOMA
  2. INTRON A [Suspect]
     Active Substance: INTERFERON ALFA-2B
     Indication: MYCOSIS FUNGOIDES
     Dosage: UNK
     Route: 058
     Dates: start: 20150416

REACTIONS (6)
  - Fatigue [Unknown]
  - Drug administration error [Unknown]
  - Gastrooesophageal reflux disease [Unknown]
  - Pain in extremity [Unknown]
  - Influenza like illness [Unknown]
  - Back pain [Unknown]

NARRATIVE: CASE EVENT DATE: 20150416
